FAERS Safety Report 5198925-5 (Version None)
Quarter: 2006Q4

REPORT INFORMATION
  Report Type: 
  Country: None (occurrence: None)
  Receive Date: 20060921
  Receipt Date: 20060327
  Transmission Date: 20070319
  Serious: Yes (Other)
  Sender: FDA-Public Use
  Company Number: PHEH2005US06282

PATIENT
  Age: 52 Year
  Sex: Female
  Weight: 101.6 kg

DRUGS (5)
  1. ZELNORM [Suspect]
     Indication: IRRITABLE BOWEL SYNDROME
     Dosage: 6 MG, BID, ORAL
     Route: 048
     Dates: start: 20041111, end: 20041113
  2. KETEK [Suspect]
     Indication: SINUSITIS
     Dosage: 800 MG, QD,
     Dates: end: 20041101
  3. ZYRTEC [Concomitant]
  4. WELLBUTRIN [Concomitant]
  5. LASIX [Concomitant]

REACTIONS (5)
  - ABDOMINAL DISTENSION [None]
  - DYSPNOEA [None]
  - ERUCTATION [None]
  - HEADACHE [None]
  - SWELLING FACE [None]
